FAERS Safety Report 5056331-8 (Version None)
Quarter: 2006Q2

REPORT INFORMATION
  Report Type: 
  Country: None (occurrence: None)
  Receive Date: 20060616
  Receipt Date: 20060403
  Transmission Date: 20061013
  Serious: Yes (Other)
  Sender: FDA-Public Use
  Company Number: PHEH2006US04482

PATIENT
  Sex: Female

DRUGS (3)
  1. EXELON [Suspect]
     Indication: COGNITIVE DISORDER
  2. COUMADIN [Concomitant]
  3. ANTIHYPERTENSIVE DRUGS (NO INGREDIENTS/SUBSTANCES) [Concomitant]

REACTIONS (2)
  - DIZZINESS [None]
  - HALLUCINATION [None]
